FAERS Safety Report 21700251 (Version 1)
Quarter: 2022Q4

REPORT INFORMATION
  Report Type: Report from Study
  Country: CH (occurrence: CH)
  Receive Date: 20221208
  Receipt Date: 20221208
  Transmission Date: 20230113
  Serious: Yes (Death)
  Sender: FDA-Public Use
  Company Number: CH-SA-2022SA493511

PATIENT

DRUGS (6)
  1. ZOLPIDEM TARTRATE [Suspect]
     Active Substance: ZOLPIDEM TARTRATE
  2. QUETIAPINE FUMARATE [Suspect]
     Active Substance: QUETIAPINE FUMARATE
  3. TRAZODONE HYDROCHLORIDE [Suspect]
     Active Substance: TRAZODONE HYDROCHLORIDE
  4. DIAZEPAM [Suspect]
     Active Substance: DIAZEPAM
  5. LORAZEPAM [Suspect]
     Active Substance: LORAZEPAM
  6. NORDAZEPAM [Suspect]
     Active Substance: NORDAZEPAM

REACTIONS (1)
  - Toxicity to various agents [Fatal]
